FAERS Safety Report 7190522-5 (Version None)
Quarter: 2010Q4

REPORT INFORMATION
  Report Type: 
  Country: None (occurrence: None)
  Receive Date: 20101221
  Receipt Date: 20101221
  Transmission Date: 20110411
  Serious: Yes (Other)
  Sender: FDA-Public Use
  Company Number: None

PATIENT
  Age: 54 Year
  Sex: Male
  Weight: 92.0802 kg

DRUGS (1)
  1. TRIMETHOPRIM + SULFAMETHOXAZOLE [Suspect]
     Indication: WOUND INFECTION
     Dates: start: 20100813, end: 20100818

REACTIONS (4)
  - AMYLOIDOSIS [None]
  - BLOOD CREATININE INCREASED [None]
  - GLOMERULONEPHROPATHY [None]
  - IMPAIRED HEALING [None]
